FAERS Safety Report 5244683-5 (Version None)
Quarter: 2007Q1

REPORT INFORMATION
  Report Type: 
  Country: None (occurrence: None)
  Receive Date: 20061201
  Receipt Date: 20060808
  Transmission Date: 20070707
  Serious: No
  Sender: FDA-Public Use
  Company Number: 2006PV019063

PATIENT
  Age: 60 Year
  Sex: Female
  Weight: 85.7298 kg

DRUGS (4)
  1. BYETTA [Suspect]
     Indication: DIABETES MELLITUS NON-INSULIN-DEPENDENT
     Dosage: SEE IMAGE
     Route: 058
     Dates: start: 20060707, end: 20060806
  2. BYETTA [Suspect]
     Indication: DIABETES MELLITUS NON-INSULIN-DEPENDENT
     Dosage: SEE IMAGE
     Route: 058
     Dates: start: 20060807, end: 20060808
  3. GLUCOPHAGE [Concomitant]
  4. GLIPIZIDE [Concomitant]

REACTIONS (3)
  - BLOOD GLUCOSE ABNORMAL [None]
  - NAUSEA [None]
  - VOMITING [None]
